FAERS Safety Report 6135132-3 (Version None)
Quarter: 2009Q1

REPORT INFORMATION
  Report Type: 
  Country: None (occurrence: None)
  Receive Date: 20090327
  Receipt Date: 20090319
  Transmission Date: 20090719
  Serious: Yes (Death, Life-Threatening, Hospitalization)
  Sender: FDA-Public Use
  Company Number: JP-MERCK-0902USA02737

PATIENT
  Age: 67 Year
  Sex: Male
  Weight: 50 kg

DRUGS (10)
  1. STROMECTOL [Suspect]
     Indication: ACARODERMATITIS
     Route: 048
     Dates: start: 20090127, end: 20090127
  2. PLAVIX [Concomitant]
     Indication: INFARCTION
     Route: 048
     Dates: start: 20090110, end: 20090202
  3. LANDSEN [Concomitant]
     Indication: EPILEPSY
     Route: 048
     Dates: start: 20090110, end: 20090202
  4. LANIRAPID [Concomitant]
     Indication: TACHYCARDIA
     Route: 048
     Dates: start: 20081028, end: 20090202
  5. THEO-DUR [Concomitant]
     Indication: ASTHMA
     Route: 048
     Dates: start: 20081028, end: 20090202
  6. ZANTAC [Concomitant]
     Indication: PROPHYLAXIS AGAINST GASTROINTESTINAL ULCER
     Route: 048
     Dates: start: 20081028, end: 20090202
  7. ATARAX [Concomitant]
     Indication: RASH
     Route: 048
     Dates: start: 20090127, end: 20090202
  8. PREDONINE [Concomitant]
     Route: 065
     Dates: start: 20081018, end: 20090120
  9. PREDONINE [Concomitant]
     Route: 065
     Dates: start: 20080912, end: 20081017
  10. ALLEGRA [Concomitant]
     Indication: RASH
     Route: 048
     Dates: start: 20090127, end: 20090202

REACTIONS (7)
  - ASTHMA [None]
  - DEHYDRATION [None]
  - EPILEPSY [None]
  - PNEUMONIA [None]
  - PULMONARY OEDEMA [None]
  - PYREXIA [None]
  - RASH [None]
